FAERS Safety Report 5194470-1 (Version None)
Quarter: 2006Q4

REPORT INFORMATION
  Report Type: 
  Country: None (occurrence: None)
  Receive Date: 20061221
  Receipt Date: 20060420
  Transmission Date: 20070319
  Serious: No
  Sender: FDA-Public Use
  Company Number: CAR-2006-007

PATIENT

DRUGS (1)
  1. SUCRALFATE [Suspect]
     Indication: PEPTIC ULCER
     Dosage: PO
     Route: 046

REACTIONS (1)
  - HAEMOLYTIC ANAEMIA [None]
